FAERS Safety Report 25035596 (Version 2)
Quarter: 2025Q2

REPORT INFORMATION
  Report Type: Spontaneous
  Country: US (occurrence: US)
  Receive Date: 20250304
  Receipt Date: 20250401
  Transmission Date: 20250717
  Serious: Yes (Hospitalization)
  Sender: AMGEN
  Company Number: US-AMGEN-USASP2025039223

PATIENT
  Age: 78 Year
  Sex: Female

DRUGS (3)
  1. REPATHA [Suspect]
     Active Substance: EVOLOCUMAB
     Indication: Blood cholesterol abnormal
     Dosage: 140 MILLIGRAM, Q2WK
     Route: 065
  2. ARMOUR THYROID [Concomitant]
     Active Substance: THYROID, PORCINE
     Indication: Hyperthyroidism
     Route: 065
  3. ARMOUR THYROID [Concomitant]
     Active Substance: THYROID, PORCINE
     Indication: Product used for unknown indication

REACTIONS (21)
  - Unevaluable event [Unknown]
  - Hypersensitivity [Recovering/Resolving]
  - Gastrointestinal disorder [Recovering/Resolving]
  - Fatigue [Recovering/Resolving]
  - Somnolence [Recovering/Resolving]
  - Asthenia [Recovering/Resolving]
  - Hypoaesthesia oral [Recovering/Resolving]
  - Urinary tract disorder [Recovering/Resolving]
  - Nervousness [Unknown]
  - Confusional state [Unknown]
  - Blood pressure increased [Unknown]
  - Skin mass [Unknown]
  - Muscle spasms [Unknown]
  - General physical health deterioration [Unknown]
  - Neck pain [Unknown]
  - Pruritus [Unknown]
  - Paraesthesia [Unknown]
  - Musculoskeletal stiffness [Unknown]
  - Stress [Unknown]
  - Fear [Unknown]
  - Therapy interrupted [Unknown]
